FAERS Safety Report 21271481 (Version 1)
Quarter: 2022Q3

REPORT INFORMATION
  Report Type: Report from Study
  Country: DE (occurrence: DE)
  Receive Date: 20220830
  Receipt Date: 20220830
  Transmission Date: 20221027
  Serious: Yes (Hospitalization)
  Sender: FDA-Public Use
  Company Number: DE-MYLANLABS-2022M1086387

PATIENT
  Sex: Female

DRUGS (3)
  1. ETANERCEPT [Suspect]
     Active Substance: ETANERCEPT
     Dosage: 50 MILLIGRAM
     Dates: start: 201509, end: 201806
  2. METHOTREXATE SODIUM [Suspect]
     Active Substance: METHOTREXATE SODIUM
     Indication: Rheumatoid arthritis
     Dosage: 2.5 MILLIGRAM
     Dates: start: 20160225
  3. METHOTREXATE SODIUM [Suspect]
     Active Substance: METHOTREXATE SODIUM
     Dosage: 2.5 MILLIGRAM
     Dates: start: 20150909

REACTIONS (1)
  - Spinal fracture [Unknown]

NARRATIVE: CASE EVENT DATE: 20190501
